FAERS Safety Report 8857477 (Version 1)
Quarter: 2012Q4

REPORT INFORMATION
  Report Type: Report from Study
  Country: BR (occurrence: BR)
  Receive Date: 20121024
  Receipt Date: 20121024
  Transmission Date: 20130627
  Serious: Yes (Other)
  Sender: FDA-Public Use
  Company Number: BR-ROCHE-1146933

PATIENT
  Sex: Female
  Weight: 62 kg

DRUGS (6)
  1. RITUXIMAB [Suspect]
     Indication: RHEUMATOID ARTHRITIS
     Dosage: 2nd cycle infusion on 05/Oct/2012,
     Route: 042
     Dates: start: 20110831
  2. RITUXIMAB [Suspect]
     Route: 042
     Dates: start: 20120916
  3. METHOTREXATE [Concomitant]
  4. METHYLPREDNISOLONE [Concomitant]
     Route: 065
  5. DIPHENHYDRAMINE [Concomitant]
     Route: 065
  6. PARACETAMOL [Concomitant]
     Route: 065

REACTIONS (4)
  - Angina pectoris [Unknown]
  - Paraesthesia [Unknown]
  - Throat tightness [Unknown]
  - Sleep disorder [Unknown]
